FAERS Safety Report 4766190-6 (Version None)
Quarter: 2005Q3

REPORT INFORMATION
  Report Type: 
  Country: None (occurrence: None)
  Receive Date: 20050909
  Receipt Date: 20050819
  Transmission Date: 20060218
  Serious: Yes (Other)
  Sender: FDA-Public Use
  Company Number: 12230

PATIENT
  Age: 22 Year
  Sex: Female

DRUGS (1)
  1. METHOTREXATE [Suspect]
     Dosage: 62.5 MG  IT
     Route: 038

REACTIONS (13)
  - ABNORMAL BEHAVIOUR [None]
  - APHASIA [None]
  - BLOOD MAGNESIUM DECREASED [None]
  - CONVERSION DISORDER [None]
  - COORDINATION ABNORMAL [None]
  - DISSOCIATION [None]
  - DISSOCIATIVE DISORDER [None]
  - DYSPHASIA [None]
  - DYSPRAXIA [None]
  - MUTISM [None]
  - THERAPY NON-RESPONDER [None]
  - TONGUE DISORDER [None]
  - TOXIC INDUCED ENCEPHALOPATHY [None]
